FAERS Safety Report 19801437 (Version 1)
Quarter: 2021Q3

REPORT INFORMATION
  Report Type: Spontaneous
  Country: FR (occurrence: FR)
  Receive Date: 20210907
  Receipt Date: 20210907
  Transmission Date: 20211014
  Serious: Yes (Hospitalization)
  Sender: FDA-Public Use
  Company Number: NVSC2021FR200673

PATIENT
  Age: 17 Year
  Sex: Female
  Weight: 114 kg

DRUGS (1)
  1. PARACETAMOL [Suspect]
     Active Substance: ACETAMINOPHEN
     Indication: TOOTHACHE
     Dosage: 24000 MG (TOTAL)
     Route: 048
     Dates: start: 20210629, end: 20210630

REACTIONS (3)
  - Vomiting [Recovering/Resolving]
  - Accidental overdose [Recovered/Resolved]
  - Off label use [Recovering/Resolving]

NARRATIVE: CASE EVENT DATE: 20210629
